FAERS Safety Report 9481795 (Version 1)
Quarter: 2013Q3

REPORT INFORMATION
  Report Type: Spontaneous
  Country: CA (occurrence: CA)
  Receive Date: 20130828
  Receipt Date: 20130828
  Transmission Date: 20140515
  Serious: Yes (Other)
  Sender: FDA-Public Use
  Company Number: CA-AMGEN-KDL233054

PATIENT
  Age: 71 Year
  Sex: Female

DRUGS (1)
  1. ENBREL [Suspect]
     Indication: RHEUMATOID ARTHRITIS
     Dosage: 50 MG, QWK
     Route: 058
     Dates: start: 20070422

REACTIONS (7)
  - Lung disorder [Unknown]
  - Pneumonia [Unknown]
  - Fatigue [Unknown]
  - Blood iron decreased [Recovered/Resolved]
  - Nasal ulcer [Unknown]
  - Oral discomfort [Unknown]
  - Dry mouth [Unknown]
